FAERS Safety Report 20721945 (Version 3)
Quarter: 2022Q2

REPORT INFORMATION
  Report Type: Report from Study
  Country: AT (occurrence: AT)
  Receive Date: 20220418
  Receipt Date: 20220509
  Transmission Date: 20220721
  Serious: Yes (Hospitalization)
  Sender: FDA-Public Use
  Company Number: AT-ABBVIE-22K-009-4360005-00

PATIENT
  Age: 82 Year
  Sex: Female

DRUGS (3)
  1. CARBIDOPA\LEVODOPA [Suspect]
     Active Substance: CARBIDOPA\LEVODOPA
     Indication: Parkinson^s disease
     Dosage: 16H THERAPY, MD: 7,0ML; CR DAYTIME: 3,0 ML/H; CR NIGHTTIME: 3,0ML/H; ED: 2,0ML
     Route: 050
     Dates: start: 20161123
  2. CARBIDOPA\LEVODOPA [Suspect]
     Active Substance: CARBIDOPA\LEVODOPA
     Dosage: 24H
     Route: 050
  3. CARBIDOPA\LEVODOPA [Suspect]
     Active Substance: CARBIDOPA\LEVODOPA
     Dosage: MD: 7.0, CR DAYTIME: 3.6ML/H, CR NIGHTTIME: 3.6ML/H, ED: 2.0
     Route: 050

REACTIONS (4)
  - General physical health deterioration [Not Recovered/Not Resolved]
  - Herpes zoster [Recovering/Resolving]
  - Somnolence [Unknown]
  - Device issue [Unknown]
